FAERS Safety Report 7502822-7 (Version None)
Quarter: 2011Q2

REPORT INFORMATION
  Report Type: 
  Country: None (occurrence: None)
  Receive Date: 20110518
  Receipt Date: 20110422
  Transmission Date: 20111010
  Serious: No
  Sender: FDA-Public Use
  Company Number: 2011-00212

PATIENT
  Age: 73 Year
  Sex: Female
  Weight: 81.6475 kg

DRUGS (2)
  1. ZICAM COLD REMEDY ORAL MIST [Suspect]
     Dosage: AS DIRECTED - 7 DAYS
     Route: 046
     Dates: start: 20110415, end: 20110415
  2. BHI SINUS [Concomitant]

REACTIONS (1)
  - AGEUSIA [None]
